FAERS Safety Report 21683676 (Version 1)
Quarter: 2022Q4

REPORT INFORMATION
  Report Type: Spontaneous
  Country: US (occurrence: None)
  Receive Date: 20221202
  Receipt Date: 20221202
  Transmission Date: 20230113
  Serious: Yes (Hospitalization)
  Sender: FDA-Public Use
  Company Number: None

PATIENT
  Age: 64 Year
  Sex: Female

DRUGS (10)
  1. SIROLIMUS [Suspect]
     Active Substance: SIROLIMUS
     Indication: Renal transplant
     Dosage: 1 MG ORAL?TAKE 3 TABLETS BY MOUTH DAILY?
     Route: 048
     Dates: start: 20220211
  2. AZITHROMYCIN TAB [Concomitant]
  3. CYCLOBENZAPR TAB [Concomitant]
  4. FEXOFENADINE TAB [Concomitant]
  5. MYCOPHENOLAT TAB [Concomitant]
  6. MYCOPHENOLATE CAP [Concomitant]
  7. PROPO-N/APAP TAB [Concomitant]
  8. RAPAMUNE [Concomitant]
     Active Substance: SIROLIMUS
  9. SIMVASTATIN [Concomitant]
     Active Substance: SIMVASTATIN
  10. VITAMIN D CAP [Concomitant]

REACTIONS (1)
  - Therapy interrupted [None]

NARRATIVE: CASE EVENT DATE: 20221121
